FAERS Safety Report 8815969 (Version 2)
Quarter: 2015Q3

REPORT INFORMATION
  Report Type: Report from Study
  Country: US (occurrence: US)
  Receive Date: 20120928
  Receipt Date: 20150702
  Transmission Date: 20151125
  Serious: Yes (Death, Hospitalization)
  Sender: FDA-Public Use
  Company Number: US-ROCHE-1127099

PATIENT
  Age: 67 Year
  Sex: Male
  Weight: 109 kg

DRUGS (11)
  1. AVASTIN [Suspect]
     Active Substance: BEVACIZUMAB
     Indication: PANCREATIC CARCINOMA
  2. XELODA [Suspect]
     Active Substance: CAPECITABINE
     Indication: MALIGNANT URINARY TRACT NEOPLASM
  3. ZOMETA [Concomitant]
     Active Substance: ZOLEDRONIC ACID
     Route: 065
  4. GEMZAR [Concomitant]
     Active Substance: GEMCITABINE HYDROCHLORIDE
     Indication: RENAL CANCER
  5. AVASTIN [Suspect]
     Active Substance: BEVACIZUMAB
     Indication: MALIGNANT URINARY TRACT NEOPLASM
     Route: 042
     Dates: start: 20050125
  6. AVASTIN [Suspect]
     Active Substance: BEVACIZUMAB
     Indication: RENAL CANCER
     Route: 042
     Dates: start: 20041214
  7. XELODA [Suspect]
     Active Substance: CAPECITABINE
     Indication: RENAL CANCER
     Route: 065
  8. TARCEVA [Suspect]
     Active Substance: ERLOTINIB HYDROCHLORIDE
     Indication: METASTASES TO BONE
     Route: 048
  9. LISINOPRIL. [Concomitant]
     Active Substance: LISINOPRIL
     Route: 048
  10. GEMZAR [Concomitant]
     Active Substance: GEMCITABINE HYDROCHLORIDE
     Indication: MALIGNANT URINARY TRACT NEOPLASM
  11. SORAFENIB [Concomitant]
     Active Substance: SORAFENIB

REACTIONS (19)
  - Death [Fatal]
  - Nausea [Unknown]
  - Off label use [Unknown]
  - Pain [Unknown]
  - Vomiting [Unknown]
  - Constipation [Unknown]
  - Stomatitis [Unknown]
  - Mucosal inflammation [Unknown]
  - Underdose [Unknown]
  - Disease progression [Unknown]
  - Loss of consciousness [Unknown]
  - Asthenia [Unknown]
  - Decreased appetite [Unknown]
  - Osteonecrosis [Unknown]
  - Fatigue [Unknown]
  - Diarrhoea [Unknown]
  - Heart rate decreased [Unknown]
  - Rash [Unknown]
  - Protein urine present [Unknown]

NARRATIVE: CASE EVENT DATE: 20060307
